FAERS Safety Report 9024989 (Version 3)
Quarter: 2013Q3

REPORT INFORMATION
  Report Type: Spontaneous
  Country: US (occurrence: US)
  Receive Date: 20130121
  Receipt Date: 20130702
  Transmission Date: 20140515
  Serious: Yes (Hospitalization)
  Sender: FDA-Public Use
  Company Number: US-BAYER-2013-006616

PATIENT
  Age: 25 Year
  Sex: Female
  Weight: 72.56 kg

DRUGS (10)
  1. YASMIN [Suspect]
     Dosage: UNK
     Dates: start: 200608, end: 200808
  2. OCELLA [Suspect]
     Dosage: UNK
     Dates: start: 200808, end: 201108
  3. AMITRIPTYLINE [Concomitant]
     Dosage: 10 MG, UNK
     Route: 048
     Dates: start: 20110604
  4. DESOXIMETASONE [Concomitant]
     Dosage: 0.25 %, UNK
     Route: 061
     Dates: start: 20110604
  5. CITALOPRAM [Concomitant]
     Indication: ANXIETY
     Dosage: 20 MG, ONE AND A HALF DAILY
     Route: 048
  6. CITALOPRAM [Concomitant]
     Indication: DEPRESSION
  7. FLUTICASONE [Concomitant]
     Dosage: 50 MCG 2 SPRAYS ONCE DAILY
  8. NAPROSYN [Concomitant]
     Indication: PAIN
     Dosage: ONE TABLET TWICE DAILY AS NEEDED
     Route: 048
  9. CELEXA [Concomitant]
  10. TYLENOL #3 [Concomitant]

REACTIONS (10)
  - Thrombosis mesenteric vessel [None]
  - Intestinal ischaemia [None]
  - Injury [None]
  - Pain [None]
  - General physical health deterioration [None]
  - Anxiety [None]
  - Emotional distress [None]
  - Pain [None]
  - Mental disorder [None]
  - Post-traumatic stress disorder [None]
